FAERS Safety Report 15599524 (Version 1)
Quarter: 2018Q4

REPORT INFORMATION
  Report Type: Report from Study
  Country: ZA (occurrence: ZA)
  Receive Date: 20181108
  Receipt Date: 20181108
  Transmission Date: 20190205
  Serious: Yes (Death)
  Sender: FDA-Public Use
  Company Number: ZA-PFIZER INC-2018450083

PATIENT
  Age: 35 Year
  Sex: Female

DRUGS (15)
  1. ETHIONAMIDE [Suspect]
     Active Substance: ETHIONAMIDE
     Indication: TUBERCULOSIS
     Dosage: 750 UNK, 1X/DAY (NOCTE)
     Route: 048
     Dates: start: 20180723
  2. DELAMANID [Suspect]
     Active Substance: DELAMANID
     Indication: TUBERCULOSIS
     Dosage: 100 MG, 2X/DAY
     Route: 048
     Dates: start: 20180910
  3. PREGAMAL [Concomitant]
  4. FTC [Concomitant]
     Active Substance: EMTRICITABINE
  5. BEDAQUILINE [Suspect]
     Active Substance: BEDAQUILINE
     Indication: TUBERCULOSIS
     Dosage: 200 MG, 3 TIMES A WEEK
     Route: 048
     Dates: start: 20180723
  6. PYRIDOXINE [Concomitant]
     Active Substance: PYRIDOXINE
  7. SLOW-MAG [Concomitant]
     Active Substance: MAGNESIUM CHLORIDE
  8. LINEZOLID. [Suspect]
     Active Substance: LINEZOLID
     Indication: TUBERCULOSIS
     Dosage: 600 MG, 1X/DAY
     Route: 048
     Dates: start: 20180723
  9. CLOFAZIMINE [Suspect]
     Active Substance: CLOFAZIMINE
     Indication: TUBERCULOSIS
     Dosage: 100 MG, 1X/DAY
     Route: 048
     Dates: start: 20180723
  10. TDF [Concomitant]
     Active Substance: DILOXANIDE FUROATE\TINIDAZOLE
  11. SLOW-K [Concomitant]
     Active Substance: POTASSIUM CHLORIDE
  12. CALCIUM GLUCONATE. [Concomitant]
     Active Substance: CALCIUM GLUCONATE
  13. PAS [Suspect]
     Active Substance: AMINOSALICYLIC ACID
     Indication: TUBERCULOSIS
     Dosage: 8 G, 1X/DAY
     Route: 048
     Dates: start: 20180906
  14. TERIZIDONE [Suspect]
     Active Substance: TERIZIDONE
     Indication: TUBERCULOSIS
     Dosage: 750 MG, 1X/DAY (NOCTE)
     Route: 048
     Dates: start: 20180906
  15. NEVIRAPINE. [Concomitant]
     Active Substance: NEVIRAPINE

REACTIONS (1)
  - Metabolic acidosis [Fatal]

NARRATIVE: CASE EVENT DATE: 20181004
